FAERS Safety Report 22608587 (Version 1)
Quarter: 2023Q2

REPORT INFORMATION
  Report Type: Spontaneous
  Country: AU (occurrence: AU)
  Receive Date: 20230616
  Receipt Date: 20230616
  Transmission Date: 20230722
  Serious: Yes (Other)
  Sender: FDA-Public Use
  Company Number: AU-ABBVIE-5182584

PATIENT
  Sex: Male
  Weight: 82 kg

DRUGS (1)
  1. SKYRIZI [Suspect]
     Active Substance: RISANKIZUMAB-RZAA
     Indication: Psoriasis
     Route: 058
     Dates: start: 20230321, end: 20230418

REACTIONS (10)
  - Deep vein thrombosis [Unknown]
  - Atypical pneumonia [Recovered/Resolved]
  - Feeling of body temperature change [Recovered/Resolved]
  - Pleuritic pain [Recovered/Resolved]
  - Neutrophilia [Unknown]
  - Pulmonary embolism [Unknown]
  - Albuminuria [Unknown]
  - Liver function test abnormal [Unknown]
  - Blood cholesterol increased [Unknown]
  - Monocytosis [Unknown]

NARRATIVE: CASE EVENT DATE: 20230101
